FAERS Safety Report 21176894 (Version 2)
Quarter: 2022Q3

REPORT INFORMATION
  Report Type: Spontaneous
  Country: GB (occurrence: GB)
  Receive Date: 20220805
  Receipt Date: 20220810
  Transmission Date: 20221026
  Serious: No
  Sender: FDA-Public Use
  Company Number: GB-PFIZER INC-PV202200036282

PATIENT
  Age: 74 Year
  Sex: Female

DRUGS (1)
  1. PAXLOVID [Suspect]
     Active Substance: NIRMATRELVIR\RITONAVIR
     Indication: COVID-19 treatment
     Dosage: 1 DF (ONE TABLET WAS GIVEN)

REACTIONS (4)
  - Product dispensing error [Unknown]
  - Product packaging confusion [Unknown]
  - Product communication issue [Unknown]
  - Incorrect dose administered [Unknown]
